FAERS Safety Report 5478978-7 (Version None)
Quarter: 2007Q4

REPORT INFORMATION
  Report Type: 
  Country: None (occurrence: None)
  Receive Date: 20071006
  Receipt Date: 20070925
  Transmission Date: 20080405
  Serious: Yes (Other)
  Sender: FDA-Public Use
  Company Number: FR-PFIZER INC-2007080339

PATIENT
  Age: 46 Year
  Sex: Male

DRUGS (1)
  1. LINEZOLID [Suspect]
     Indication: CATHETER RELATED INFECTION
     Dates: start: 20070801, end: 20070101

REACTIONS (3)
  - THROMBOCYTOPENIA [None]
  - VERTIGO [None]
  - VISION BLURRED [None]
